FAERS Safety Report 6369303-8 (Version None)
Quarter: 2009Q3

REPORT INFORMATION
  Report Type: 
  Country: None (occurrence: None)
  Receive Date: 20090916
  Receipt Date: 20090902
  Transmission Date: 20100115
  Serious: Yes (Other)
  Sender: FDA-Public Use
  Company Number: 1-18346899

PATIENT
  Age: 76 Year
  Sex: Female

DRUGS (5)
  1. ULTIVA [Suspect]
     Indication: ANAESTHESIA
     Dosage: 0.05 TO 0.25 MCG/KG/MIN
     Dates: start: 20080705
  2. AMITRIPTYLINE HCL [Suspect]
     Indication: DEPRESSION
     Dosage: 75 MG DAILY, ORAL 6 YEARS PRIOR
     Route: 048
  3. PROPOFOL [Suspect]
     Indication: ANAESTHESIA
     Dosage: 40 MG/KG, INTRAVENOUS
     Route: 042
  4. SEVOFLURANE [Suspect]
     Indication: ANAESTHESIA
     Dosage: 1.5%, INHALATION
     Route: 055
     Dates: start: 20090705
  5. VECURONIUM BROMIDE [Concomitant]

REACTIONS (4)
  - FALL [None]
  - HEART RATE DECREASED [None]
  - HUMERUS FRACTURE [None]
  - HYPOTENSION [None]
